FAERS Safety Report 8335405-X (Version None)
Quarter: 2012Q2

REPORT INFORMATION
  Report Type: 
  Country: None (occurrence: None)
  Receive Date: 20120503
  Receipt Date: 20120427
  Transmission Date: 20120825
  Serious: Yes (Hospitalization, Disabling)
  Sender: FDA-Public Use
  Company Number: US-MERCK-1203USA03339

PATIENT
  Age: 68 Year
  Sex: Female

DRUGS (15)
  1. FOSAMAX [Suspect]
     Indication: OSTEOPENIA
     Route: 048
     Dates: start: 19990301
  2. [THERAPY UNSPECIFIED] [Concomitant]
     Indication: HYPERTENSION
     Route: 065
  3. VITAMINS (UNSPECIFIED) [Concomitant]
     Route: 065
  4. FOSAMAX [Suspect]
     Route: 048
     Dates: start: 20010101, end: 20110101
  5. HORMONES (UNSPECIFIED) [Concomitant]
     Route: 065
     Dates: start: 19980301, end: 20070601
  6. CALCIUM (UNSPECIFIED) AND VITAMIN D (UNSPECIFIED) [Concomitant]
     Route: 065
  7. ASPIRIN [Concomitant]
     Route: 065
  8. FOSAMAX [Suspect]
     Indication: OSTEOPOROSIS
     Route: 048
     Dates: start: 19990301
  9. VITAMIN D (UNSPECIFIED) [Concomitant]
     Route: 065
  10. ALENDRONATE SODIUM [Suspect]
     Indication: OSTEOPENIA
     Route: 048
     Dates: start: 20081201
  11. OMEGA-3 MARINE TRIGLYCERIDES [Concomitant]
     Route: 065
  12. FOSAMAX [Suspect]
     Route: 048
     Dates: start: 20010101, end: 20110101
  13. ALENDRONATE SODIUM [Suspect]
     Indication: OSTEOPOROSIS
     Route: 048
     Dates: start: 20081201
  14. [THERAPY UNSPECIFIED] [Concomitant]
     Indication: BLOOD CHOLESTEROL INCREASED
     Route: 065
  15. EVENING PRIMROSE OIL [Concomitant]
     Route: 065

REACTIONS (15)
  - OSTEOARTHRITIS [None]
  - FEMUR FRACTURE [None]
  - PATHOLOGICAL FRACTURE [None]
  - STRESS FRACTURE [None]
  - ADVERSE EVENT [None]
  - IMPAIRED HEALING [None]
  - APPENDIX DISORDER [None]
  - VERTIGO [None]
  - BLOOD PRESSURE INCREASED [None]
  - PROCEDURAL PAIN [None]
  - LOW TURNOVER OSTEOPATHY [None]
  - URTICARIA CHRONIC [None]
  - OSTEOPOROSIS [None]
  - HYPERLIPIDAEMIA [None]
  - FRACTURE NONUNION [None]
